FAERS Safety Report 5452873-1 (Version None)
Quarter: 2007Q3

REPORT INFORMATION
  Report Type: 
  Country: None (occurrence: None)
  Receive Date: 20070914
  Receipt Date: 20070907
  Transmission Date: 20080115
  Serious: Yes (Death, Life-Threatening)
  Sender: FDA-Public Use
  Company Number: A0666583A

PATIENT
  Age: 57 Year
  Sex: Female
  Weight: 64 kg

DRUGS (3)
  1. LAPATINIB [Suspect]
     Dosage: 1250MG PER DAY
     Route: 048
     Dates: start: 20070706
  2. HYCAMTIN [Suspect]
     Dosage: 5.3MG WEEKLY
     Route: 042
     Dates: start: 20070706
  3. BETAPRED [Concomitant]
     Dosage: 4MG TWICE PER DAY

REACTIONS (13)
  - ARTHRALGIA [None]
  - ASTHENIA [None]
  - BLISTER [None]
  - CONVULSION [None]
  - ERYSIPELAS [None]
  - FATIGUE [None]
  - LOSS OF CONSCIOUSNESS [None]
  - NEUTROPENIA [None]
  - PAIN IN EXTREMITY [None]
  - PYREXIA [None]
  - RESPIRATORY RATE DECREASED [None]
  - SEPSIS [None]
  - SOMNOLENCE [None]
